FAERS Safety Report 5947832-6 (Version None)
Quarter: 2008Q4

REPORT INFORMATION
  Report Type: 
  Country: None (occurrence: None)
  Receive Date: 20081110
  Receipt Date: 20081110
  Transmission Date: 20090506
  Serious: No
  Sender: FDA-Public Use
  Company Number: None

PATIENT
  Age: 54 Year
  Sex: Female
  Weight: 86.1834 kg

DRUGS (2)
  1. THOTHIXENE 1MG MYLAN [Suspect]
     Indication: NIGHTMARE
     Dosage: 1MG 1 AT BED PO
     Route: 048
     Dates: start: 20081103, end: 20081108
  2. THOTHIXENE 1MG MYLAN [Suspect]
     Indication: SLEEP TERROR
     Dosage: 1MG 1 AT BED PO
     Route: 048
     Dates: start: 20081103, end: 20081108

REACTIONS (6)
  - COMPULSIVE LIP BITING [None]
  - DYSGEUSIA [None]
  - DYSURIA [None]
  - HEADACHE [None]
  - HYPOPHAGIA [None]
  - MYALGIA [None]
